FAERS Safety Report 5163473-5 (Version None)
Quarter: 2006Q4

REPORT INFORMATION
  Report Type: 
  Country: None (occurrence: None)
  Receive Date: 20061204
  Receipt Date: 20061116
  Transmission Date: 20070319
  Serious: Yes (Death, Life-Threatening, Hospitalization, Disabling, Other)
  Sender: FDA-Public Use
  Company Number: NSADSS2002025716

PATIENT
  Sex: Male
  Weight: 92.08 kg

DRUGS (5)
  1. REMICADE [Suspect]
     Route: 041
     Dates: start: 19990417
  2. REMICADE [Suspect]
     Indication: CROHN'S DISEASE
     Route: 041
     Dates: start: 19990417
  3. 6-MP [Suspect]
     Dates: end: 20020512
  4. 6-MP [Suspect]
     Indication: CROHN'S DISEASE
     Dates: end: 20020512
  5. MESALAMINE [Suspect]
     Indication: CROHN'S DISEASE

REACTIONS (1)
  - NON-HODGKIN'S LYMPHOMA [None]
